FAERS Safety Report 18952872 (Version 1)
Quarter: 2021Q1

REPORT INFORMATION
  Report Type: Report from Study
  Country: GB (occurrence: GB)
  Receive Date: 20210301
  Receipt Date: 20210301
  Transmission Date: 20210420
  Serious: Yes (Other)
  Sender: FDA-Public Use
  Company Number: GB-ACCORD-217919

PATIENT
  Age: 6 Year
  Sex: Female

DRUGS (2)
  1. VALPROIC ACID. [Suspect]
     Active Substance: VALPROIC ACID
     Indication: BRAIN STEM GLIOMA
     Dosage: 14.4 MG/ML, DOSE RANGE IN CYCLE IN ML: 8.5?9.1, MEAN ML PER CYCLE: 8.9,
  2. CARBOPLATIN. [Suspect]
     Active Substance: CARBOPLATIN
     Indication: BRAIN STEM GLIOMA
     Dosage: 0.18 MG/ML, DOSE RANGE IN CYCLE IN ML: 8.5?9.1, MEAN ML PER CYCLE: 8.9,

REACTIONS (2)
  - Off label use [Unknown]
  - VIth nerve paralysis [Unknown]
